FAERS Safety Report 18224560 (Version 5)
Quarter: 2021Q3

REPORT INFORMATION
  Report Type: Spontaneous
  Country: US (occurrence: US)
  Receive Date: 20200902
  Receipt Date: 20210729
  Transmission Date: 20211014
  Serious: Yes (Hospitalization)
  Sender: FDA-Public Use
  Company Number: US-EISAI MEDICAL RESEARCH-EC-2020-079775

PATIENT
  Age: 87 Year
  Sex: Female

DRUGS (3)
  1. BELVIQ [Suspect]
     Active Substance: LORCASERIN HYDROCHLORIDE
     Dosage: BELVIQ XR
     Route: 048
     Dates: start: 2017, end: 2017
  2. BELVIQ [Suspect]
     Active Substance: LORCASERIN HYDROCHLORIDE
     Dosage: BELVIQ XR
     Dates: start: 2017, end: 20171117
  3. BELVIQ [Suspect]
     Active Substance: LORCASERIN HYDROCHLORIDE
     Indication: WEIGHT DECREASED
     Route: 048
     Dates: start: 201605, end: 2017

REACTIONS (1)
  - Colorectal adenocarcinoma [Recovering/Resolving]

NARRATIVE: CASE EVENT DATE: 2018
